FAERS Safety Report 10095842 (Version 2)
Quarter: 2014Q2

REPORT INFORMATION
  Report Type: Spontaneous
  Country: US (occurrence: US)
  Receive Date: 20140422
  Receipt Date: 20140422
  Transmission Date: 20141212
  Serious: No
  Sender: FDA-Public Use
  Company Number: US-GILEAD-2013-0074188

PATIENT
  Sex: Female

DRUGS (4)
  1. LETAIRIS [Suspect]
     Indication: PRODUCT USED FOR UNKNOWN INDICATION
     Dosage: 10 MG, QD
     Dates: start: 20130423
  2. LETAIRIS [Suspect]
     Dosage: UNK
  3. TYVASO [Concomitant]
  4. REVATIO [Concomitant]

REACTIONS (2)
  - Epistaxis [Unknown]
  - Dizziness [Unknown]
